FAERS Safety Report 11518649 (Version 5)
Quarter: 2015Q4

REPORT INFORMATION
  Report Type: Spontaneous
  Country: US (occurrence: None)
  Receive Date: 20150917
  Receipt Date: 20151125
  Transmission Date: 20160304
  Serious: Yes (Other)
  Sender: FDA-Public Use
  Company Number: US-MDT-ADR-2015-01804

PATIENT
  Age: 38 Year
  Sex: Male

DRUGS (1)
  1. LIORESAL [Suspect]
     Active Substance: BACLOFEN
     Indication: MUSCLE SPASTICITY
     Dosage: 659.8 MCG/DAY

REACTIONS (4)
  - Implant site infection [None]
  - Wound dehiscence [None]
  - Purulent discharge [None]
  - Medical device site erythema [None]
